FAERS Safety Report 16379920 (Version 1)
Quarter: 2019Q2

REPORT INFORMATION
  Report Type: Spontaneous
  Country: FR (occurrence: FR)
  Receive Date: 20190531
  Receipt Date: 20190531
  Transmission Date: 20190711
  Serious: Yes (Hospitalization)
  Sender: FDA-Public Use
  Company Number: FR-009507513-1905FRA011980

PATIENT
  Age: 87 Year
  Sex: Male
  Weight: 70 kg

DRUGS (12)
  1. ESOMEPRAZOLE. [Suspect]
     Active Substance: ESOMEPRAZOLE MAGNESIUM
     Indication: PRODUCT USED FOR UNKNOWN INDICATION
     Route: 048
     Dates: end: 20190429
  2. TOPALGIC (TRAMADOL HYDROCHLORIDE) [Suspect]
     Active Substance: TRAMADOL HYDROCHLORIDE
     Indication: PAIN
     Route: 048
     Dates: end: 20190429
  3. UVEDOSE [Concomitant]
     Active Substance: CHOLECALCIFEROL
  4. KARDEGIC [Concomitant]
     Active Substance: ASPIRIN DL-LYSINE
  5. RISPERDAL [Suspect]
     Active Substance: RISPERIDONE
     Indication: PRODUCT USED FOR UNKNOWN INDICATION
     Dosage: 0.25 MILLICURIE, QD
     Route: 048
     Dates: end: 20190429
  6. COAPROVEL [Suspect]
     Active Substance: HYDROCHLOROTHIAZIDE\IRBESARTAN
     Indication: HYPERTENSION
     Route: 048
     Dates: end: 20190429
  7. BICALUTAMIDE. [Concomitant]
     Active Substance: BICALUTAMIDE
  8. SIMVASTATIN. [Suspect]
     Active Substance: SIMVASTATIN
     Indication: PRODUCT USED FOR UNKNOWN INDICATION
     Route: 048
     Dates: end: 20190429
  9. ALLOPURINOL. [Suspect]
     Active Substance: ALLOPURINOL
     Indication: PRODUCT USED FOR UNKNOWN INDICATION
     Route: 048
     Dates: end: 20190429
  10. METOPROLOL TARTRATE. [Concomitant]
     Active Substance: METOPROLOL TARTRATE
  11. VOLTARENE (DICLOFENAC DIETHYLAMINE) [Suspect]
     Active Substance: DICLOFENAC DIETHYLAMINE
     Indication: BACK PAIN
     Route: 003
     Dates: end: 20190429
  12. DECAPEPTYL (ACETATE) [Concomitant]
     Active Substance: TRIPTORELIN ACETATE

REACTIONS (2)
  - Acute kidney injury [Recovering/Resolving]
  - Confusional state [Not Recovered/Not Resolved]

NARRATIVE: CASE EVENT DATE: 20190429
